FAERS Safety Report 7275553-9 (Version None)
Quarter: 2011Q1

REPORT INFORMATION
  Report Type: 
  Country: None (occurrence: None)
  Receive Date: 20110202
  Receipt Date: 20110202
  Transmission Date: 20110831
  Serious: Yes (Hospitalization)
  Sender: FDA-Public Use
  Company Number: None

PATIENT
  Sex: Female
  Weight: 99.4 kg

DRUGS (3)
  1. CARBOPLATIN [Suspect]
     Dosage: 600 MG
     Dates: end: 20110105
  2. TAXOTERE [Suspect]
     Dosage: 160 MG
     Dates: end: 20110105
  3. HERCEPTIN [Suspect]
     Dosage: 600 MG
     Dates: end: 20110112

REACTIONS (16)
  - PRESYNCOPE [None]
  - STAPHYLOCOCCAL INFECTION [None]
  - DIZZINESS [None]
  - HYPOPHAGIA [None]
  - HYPOTENSION [None]
  - BLOOD CULTURE POSITIVE [None]
  - PANCYTOPENIA [None]
  - MALAISE [None]
  - DIARRHOEA [None]
  - FALL [None]
  - SEROMA [None]
  - OLIGODIPSIA [None]
  - HAEMOGLOBIN DECREASED [None]
  - LARYNGITIS [None]
  - CELLULITIS [None]
  - RENAL IMPAIRMENT [None]
